FAERS Safety Report 8575675 (Version 4)
Quarter: 2014Q1

REPORT INFORMATION
  Report Type: Report from Study
  Country: US (occurrence: US)
  Receive Date: 20120523
  Receipt Date: 20140319
  Transmission Date: 20141002
  Serious: Yes (Hospitalization)
  Sender: FDA-Public Use
  Company Number: US-EISAI INC-E7272-00129-CLI-US

PATIENT
  Age: 25 Year
  Sex: Female
  Weight: 84 kg

DRUGS (5)
  1. ONTAK [Suspect]
     Indication: MYCOSIS FUNGOIDES
     Dosage: 18 UG/KG
     Route: 041
     Dates: start: 20111003, end: 20120326
  2. METHADONE [Concomitant]
     Indication: PAIN
     Route: 048
     Dates: start: 201012
  3. KLONOPIN [Concomitant]
     Route: 048
     Dates: start: 201005
  4. FLEXERIL [Concomitant]
     Route: 048
     Dates: start: 201106
  5. ZOFRAN [Concomitant]
     Route: 048
     Dates: start: 201005

REACTIONS (2)
  - Deep vein thrombosis [Recovered/Resolved]
  - Generalised oedema [Recovered/Resolved]
